FAERS Safety Report 10222145 (Version 2)
Quarter: 2014Q2

REPORT INFORMATION
  Report Type: Spontaneous
  Country: HR (occurrence: HR)
  Receive Date: 20140606
  Receipt Date: 20140606
  Transmission Date: 20141212
  Serious: Yes (Other)
  Sender: FDA-Public Use
  Company Number: HR-PFIZER INC-2014152670

PATIENT
  Age: 13 Year
  Sex: Male

DRUGS (1)
  1. AZITHROMYCIN [Suspect]
     Dosage: UNK
     Route: 048

REACTIONS (3)
  - Dermatitis bullous [Unknown]
  - Drug hypersensitivity [Unknown]
  - Oral pain [Unknown]
